FAERS Safety Report 8928543 (Version 2)
Quarter: 2013Q1

REPORT INFORMATION
  Report Type: Spontaneous
  Country: CA (occurrence: CA)
  Receive Date: 20121128
  Receipt Date: 20130320
  Transmission Date: 20140127
  Serious: Yes (Disabling)
  Sender: FDA-Public Use
  Company Number: CA-SANOFI-AVENTIS-2012SA086043

PATIENT
  Age: 65 Year
  Sex: Female

DRUGS (17)
  1. APIDRA [Suspect]
     Indication: DIABETES MELLITUS
     Route: 058
     Dates: start: 201008, end: 20121122
  2. LANTUS [Concomitant]
     Dosage: 38 UNITS TWICE A DAY IN 2009, NOW DOSE IS UNKNOWN
     Dates: start: 2008
  3. DILAUDID [Concomitant]
     Indication: PAIN
     Dosage: STRENGTH: 8 MG
     Route: 048
     Dates: start: 2008, end: 2012
  4. DILAUDID [Concomitant]
     Indication: PAIN
     Dosage: DOSE INCREASED; STRENGTH: 8 MG
     Route: 048
     Dates: start: 2012
  5. LIPITOR [Concomitant]
     Indication: BLOOD CHOLESTEROL
     Dosage: STRENGTH: 80 MG
     Route: 048
     Dates: start: 2008
  6. ASAPHEN [Concomitant]
     Indication: CARDIOVASCULAR DISORDER
     Dosage: STRENGTH: 80 MG
     Route: 048
     Dates: start: 2008
  7. HYDROCHLOROTHIAZIDE/IRBESARTAN [Concomitant]
     Indication: HYPERTENSION
     Route: 048
     Dates: start: 2008
  8. LOSEC [Concomitant]
     Indication: HYPERCHLORHYDRIA
     Dosage: STRENGTH: 20 MG
     Route: 048
     Dates: start: 2008
  9. CYMBALTA [Concomitant]
     Indication: NEURALGIA
     Dosage: STRENGTH: 60 MG
     Route: 048
     Dates: start: 201205
  10. MELOXICAM [Concomitant]
     Indication: PAIN
     Dosage: STRENGTH: 15 MG
     Route: 048
     Dates: end: 201205
  11. CELEBREX [Concomitant]
     Indication: PAIN
     Dosage: STRENGTH: 200 MG
     Route: 048
     Dates: start: 201205
  12. SYNTHROID [Concomitant]
     Indication: THYROID DISORDER
     Dosage: STRENGTH: 0.125 MG
     Route: 048
     Dates: start: 2008
  13. VITAMIN D [Concomitant]
     Indication: VITAMIN SUPPLEMENTATION
     Route: 048
     Dates: start: 201205
  14. SALBUTAMOL SULFATE [Concomitant]
     Indication: ASTHMA
     Dosage: DOSE: 2 INHALATIONS 4 TIMES DAILY
     Route: 055
     Dates: start: 2008
  15. BACLOFEN [Concomitant]
     Indication: MUSCLE SPASMS
     Dosage: STRENGTH: 10 MG
     Route: 048
     Dates: start: 201206
  16. FLOVENT [Concomitant]
     Indication: ASTHMA
     Dosage: 2 INHALATIONS TWICE DAILY; STRENGTH: 125 MCG
     Route: 055
     Dates: start: 2008
  17. GLUCAGON [Concomitant]

REACTIONS (3)
  - Blindness [Recovered/Resolved]
  - Depression [Not Recovered/Not Resolved]
  - Rash generalised [Recovered/Resolved]
